FAERS Safety Report 16345908 (Version 2)
Quarter: 2019Q3

REPORT INFORMATION
  Report Type: Spontaneous
  Country: US (occurrence: US)
  Receive Date: 20190523
  Receipt Date: 20190711
  Transmission Date: 20191004
  Serious: Yes (Other)
  Sender: FDA-Public Use
  Company Number: US-GLAXOSMITHKLINE-US2019GSK091482

PATIENT
  Sex: Male

DRUGS (3)
  1. ZANTAC [Suspect]
     Active Substance: RANITIDINE HYDROCHLORIDE
     Indication: PRODUCT USED FOR UNKNOWN INDICATION
     Dosage: 75 MG, UNK
     Route: 065
  2. ESOMEPRAZOLE. [Suspect]
     Active Substance: ESOMEPRAZOLE MAGNESIUM
     Indication: PRODUCT USED FOR UNKNOWN INDICATION
     Dosage: 20 MG, QD
     Route: 048
  3. PREVACID [Suspect]
     Active Substance: LANSOPRAZOLE
     Indication: GASTROOESOPHAGEAL REFLUX DISEASE
     Dosage: UNK
     Route: 065

REACTIONS (13)
  - Acute kidney injury [Unknown]
  - Haematuria [Unknown]
  - Renal impairment [Unknown]
  - Renal failure [Unknown]
  - Nephropathy [Unknown]
  - Pollakiuria [Unknown]
  - Diabetic nephropathy [Unknown]
  - Kidney infection [Unknown]
  - Dysuria [Unknown]
  - White blood cells urine positive [Unknown]
  - Renal disorder [Unknown]
  - Proteinuria [Unknown]
  - Chronic kidney disease [Unknown]
